FAERS Safety Report 15235246 (Version 6)
Quarter: 2018Q4

REPORT INFORMATION
  Report Type: Spontaneous
  Country: CO (occurrence: CO)
  Receive Date: 20180803
  Receipt Date: 20181108
  Transmission Date: 20190204
  Serious: Yes (Disabling, Other)
  Sender: FDA-Public Use
  Company Number: CO-REGENERON PHARMACEUTICALS, INC.-2018-32172

PATIENT

DRUGS (4)
  1. METOPROLOL. [Concomitant]
     Active Substance: METOPROLOL
     Dosage: 50 MG, BID
  2. METOPROLOL. [Concomitant]
     Active Substance: METOPROLOL
     Indication: HYPERTENSION
     Dosage: 50 MG, BID
  3. LEVOTHYROXINE. [Concomitant]
     Active Substance: LEVOTHYROXINE
     Indication: HYPOTHYROIDISM
     Dosage: 50 ?G, QD
  4. EYLEA [Suspect]
     Active Substance: AFLIBERCEPT
     Indication: AGE-RELATED MACULAR DEGENERATION
     Dosage: 100 ?L, ONCE; OU; TOTAL OF 7 INJ. ON OS AND 2 ON OD, PRIOR TO THE EVENT (INCLUDING THIS ONE)
     Route: 031
     Dates: start: 20180712, end: 20180712

REACTIONS (7)
  - Vision blurred [Recovering/Resolving]
  - Blindness [Unknown]
  - Retinal artery thrombosis [Unknown]
  - Product tampering [Unknown]
  - Overdose [Unknown]
  - Suspected counterfeit product [Unknown]
  - Product prescribing issue [Unknown]

NARRATIVE: CASE EVENT DATE: 201807
